FAERS Safety Report 25182692 (Version 1)
Quarter: 2025Q2

REPORT INFORMATION
  Report Type: Spontaneous
  Country: IE (occurrence: IE)
  Receive Date: 20250410
  Receipt Date: 20250410
  Transmission Date: 20250716
  Serious: Yes (Other)
  Sender: TAKEDA
  Company Number: IE-JNJFOC-20250369219

PATIENT
  Age: 65 Year
  Sex: Female

DRUGS (11)
  1. HYQVIA [Suspect]
     Active Substance: HUMAN IMMUNOGLOBULIN G\HYALURONIDASE (HUMAN RECOMBINANT)
     Indication: Product used for unknown indication
     Dosage: 20 MILLIGRAM, Q4WEEKS
     Dates: start: 20200508
  2. IMBRUVICA [Suspect]
     Active Substance: IBRUTINIB
     Indication: Chronic lymphocytic leukaemia
  3. LEVOTHYROXINE [Concomitant]
     Active Substance: LEVOTHYROXINE
  4. FOLIC ACID [Concomitant]
     Active Substance: FOLIC ACID
     Dosage: 5 MILLIGRAM, QD
  5. MIDODRINE [Concomitant]
     Active Substance: MIDODRINE
  6. DIAZEPAM\ISOPROPAMIDE IODIDE [Concomitant]
     Active Substance: DIAZEPAM\ISOPROPAMIDE IODIDE
     Dosage: 500 MILLIGRAM, QD
  7. ALLOPURINOL [Concomitant]
     Active Substance: ALLOPURINOL
     Dosage: 300 MILLIGRAM, QD
  8. Immunoglobulin 5 trcs [Concomitant]
     Dosage: 1 MILLIGRAM, MONTHLY
  9. MIDODRINE [Concomitant]
     Active Substance: MIDODRINE
  10. CALCIUM CARBONATE [Concomitant]
     Active Substance: CALCIUM CARBONATE
  11. VALACYCLOVIR HYDROCHLORIDE [Concomitant]
     Active Substance: VALACYCLOVIR HYDROCHLORIDE

REACTIONS (3)
  - Lower respiratory tract infection [Unknown]
  - Urinary tract infection [Unknown]
  - Pain in extremity [Unknown]

NARRATIVE: CASE EVENT DATE: 20241201
